FAERS Safety Report 15881433 (Version 3)
Quarter: 2019Q4

REPORT INFORMATION
  Report Type: Report from Study
  Country: US (occurrence: US)
  Receive Date: 20190128
  Receipt Date: 20191213
  Transmission Date: 20200122
  Serious: No
  Sender: FDA-Public Use
  Company Number: PHEH2019US004136

PATIENT
  Sex: Male

DRUGS (1)
  1. COSENTYX [Suspect]
     Active Substance: SECUKINUMAB
     Indication: PSORIASIS
     Dosage: 300 MG, Q4W
     Route: 058

REACTIONS (4)
  - Dermatitis contact [Recovered/Resolved]
  - Psoriasis [Unknown]
  - Macule [Not Recovered/Not Resolved]
  - Heart rate decreased [Unknown]
